FAERS Safety Report 13896045 (Version 1)
Quarter: 2017Q3

REPORT INFORMATION
  Report Type: Spontaneous
  Country: US (occurrence: US)
  Receive Date: 20170823
  Receipt Date: 20170823
  Transmission Date: 20171127
  Serious: No
  Sender: FDA-Public Use
  Company Number: US-TEVA-769227ACC

PATIENT
  Age: 70 Year
  Sex: Female

DRUGS (2)
  1. XANAX [Concomitant]
     Active Substance: ALPRAZOLAM
  2. METOPROLOL SUCCINATE. [Suspect]
     Active Substance: METOPROLOL SUCCINATE
     Indication: HYPERTENSION

REACTIONS (4)
  - Palpitations [Recovered/Resolved]
  - Chest pain [Recovered/Resolved]
  - Anxiety [Recovered/Resolved]
  - Drug ineffective [Recovered/Resolved]

NARRATIVE: CASE EVENT DATE: 20170505
